FAERS Safety Report 8624587-8 (Version None)
Quarter: 2012Q3

REPORT INFORMATION
  Report Type: 
  Country: None (occurrence: None)
  Receive Date: 20120827
  Receipt Date: 20120816
  Transmission Date: 20120928
  Serious: Yes (Hospitalization)
  Sender: FDA-Public Use
  Company Number: NL-ASTRAZENECA-2012SE58144

PATIENT
  Sex: Female

DRUGS (2)
  1. LEVOTHYROXINE SODIUM [Concomitant]
  2. OMEPRAZOLE [Suspect]
     Route: 048
     Dates: end: 20120801

REACTIONS (4)
  - CYST [None]
  - NAUSEA [None]
  - EATING DISORDER [None]
  - NERVOUSNESS [None]
